FAERS Safety Report 7634479-9 (Version None)
Quarter: 2011Q3

REPORT INFORMATION
  Report Type: 
  Country: None (occurrence: None)
  Receive Date: 20110725
  Receipt Date: 20090331
  Transmission Date: 20111222
  Serious: Yes (Other)
  Sender: FDA-Public Use
  Company Number: US-BAYER-200913966NA

PATIENT
  Sex: Male
  Weight: 61.224 kg

DRUGS (21)
  1. PROCRIT [Concomitant]
  2. RENAGEL [Concomitant]
  3. CALCITRIOL [Concomitant]
  4. OMNISCAN [Suspect]
     Dosage: UNK, ONCE
     Dates: start: 20060501, end: 20060501
  5. OPTIMARK [Suspect]
     Indication: PRODUCT USED FOR UNKNOWN INDICATION
  6. MULTIHANCE [Suspect]
     Indication: PRODUCT USED FOR UNKNOWN INDICATION
  7. NORVASC [Concomitant]
  8. EPOGEN [Concomitant]
  9. OMNISCAN [Suspect]
     Indication: FISTULOGRAM
     Dosage: 35 ML, ONCE
     Dates: start: 20060307, end: 20060307
  10. OMNISCAN [Suspect]
     Dosage: 20 CC PLUS 30 CC
     Dates: start: 20060314, end: 20060314
  11. FORTEO [Concomitant]
  12. MAGNEVIST [Suspect]
     Indication: PRODUCT USED FOR UNKNOWN INDICATION
     Dosage: 40 ML, ONCE
     Dates: start: 20060223, end: 20060223
  13. COUMADIN [Concomitant]
  14. LOVENOX [Concomitant]
  15. CARDIZEM [Concomitant]
  16. OMNISCAN [Suspect]
     Dosage: 45 ML, ONCE
     Route: 042
     Dates: start: 20060410, end: 20060410
  17. PROHANCE [Suspect]
     Indication: PRODUCT USED FOR UNKNOWN INDICATION
  18. OMNISCAN [Suspect]
     Indication: PRODUCT USED FOR UNKNOWN INDICATION
     Dosage: UNK
     Dates: start: 20050211, end: 20050211
  19. COZAAR [Concomitant]
  20. LABETALOL HCL [Concomitant]
  21. RIFAXIMIN [Concomitant]

REACTIONS (22)
  - IMMOBILE [None]
  - FIBROSIS [None]
  - ANXIETY [None]
  - FALL [None]
  - PAIN [None]
  - INDURATION [None]
  - OEDEMA PERIPHERAL [None]
  - NEPHROGENIC SYSTEMIC FIBROSIS [None]
  - MOBILITY DECREASED [None]
  - ANHEDONIA [None]
  - MULTIPLE FRACTURES [None]
  - PRURITUS [None]
  - JOINT LOCK [None]
  - DEPRESSION [None]
  - MUSCULOSKELETAL STIFFNESS [None]
  - JOINT CONTRACTURE [None]
  - HYPERAESTHESIA [None]
  - EMOTIONAL DISTRESS [None]
  - SKIN FIBROSIS [None]
  - BLISTER [None]
  - ERYTHEMA [None]
  - GENERAL PHYSICAL HEALTH DETERIORATION [None]
